FAERS Safety Report 10204592 (Version 1)
Quarter: 2014Q2

REPORT INFORMATION
  Report Type: Spontaneous
  Country: US (occurrence: None)
  Receive Date: 20140527
  Receipt Date: 20140527
  Transmission Date: 20141212
  Serious: No
  Sender: FDA-Public Use
  Company Number: None

PATIENT
  Age: 48 Year
  Sex: Female
  Weight: 92.53 kg

DRUGS (1)
  1. CYMBALTA [Suspect]
     Indication: OSTEOARTHRITIS
     Dosage: 1 PILL, ONCE DAILY, TAKEN BY MOUTH
     Route: 048
     Dates: start: 20140505, end: 20140507

REACTIONS (3)
  - Nausea [None]
  - Restlessness [None]
  - Insomnia [None]
